FAERS Safety Report 6547349-4 (Version None)
Quarter: 2010Q1

REPORT INFORMATION
  Report Type: 
  Country: None (occurrence: None)
  Receive Date: 20100122
  Receipt Date: 20100114
  Transmission Date: 20100710
  Serious: Yes (Other)
  Sender: FDA-Public Use
  Company Number: CA-ROCHE-667392

PATIENT
  Sex: Female
  Weight: 57.8 kg

DRUGS (6)
  1. PEG-INTERFERON ALFA 2A (RO 25-8310) [Suspect]
     Indication: HEPATITIS C
     Dosage: FORM: PRE-FILLED SYRINGE (PER PROTOCOL). TEMPORARILY STOPPED.
     Route: 058
     Dates: start: 20090821, end: 20091106
  2. PEG-INTERFERON ALFA 2A (RO 25-8310) [Suspect]
     Dosage: RESTARTED.
     Route: 058
     Dates: start: 20091113
  3. RIBAVIRIN [Suspect]
     Indication: HEPATITIS C
     Dosage: FORM PER PROTOCOL.TEMPORARILY STOPPED.
     Route: 048
     Dates: start: 20090821, end: 20091106
  4. RIBAVIRIN [Suspect]
     Dosage: RESTARTED.
     Route: 048
     Dates: start: 20091113
  5. BLINDED TMC435 [Suspect]
     Indication: HEPATITIS C
     Dosage: DOSE BLINDED, FREQUENCY: EVERY MORNING. TEMPORARILY STOPPED.
     Route: 048
     Dates: start: 20090821, end: 20091106
  6. BLINDED TMC435 [Suspect]
     Dosage: RESTARTED.
     Route: 048
     Dates: start: 20091113

REACTIONS (1)
  - OCULAR VASCULITIS [None]
